FAERS Safety Report 4501686-3 (Version None)
Quarter: 2004Q3

REPORT INFORMATION
  Report Type: 
  Country: None (occurrence: None)
  Receive Date: 20040927
  Receipt Date: 20040708
  Transmission Date: 20050211
  Serious: No
  Sender: FDA-Public Use
  Company Number: USA040156169

PATIENT
  Age: 10 Year
  Sex: Male
  Weight: 31 kg

DRUGS (5)
  1. STRATTERA [Suspect]
     Indication: ATTENTION DEFICIT/HYPERACTIVITY DISORDER
     Dosage: 25 MG / DAY
     Route: 048
     Dates: start: 20030501
  2. STRATTERA [Suspect]
     Indication: AUTISM
     Dosage: 25 MG / DAY
     Route: 048
     Dates: start: 20030501
  3. TENEX [Concomitant]
  4. CELEXA [Concomitant]
  5. RISPERDAL [Concomitant]

REACTIONS (6)
  - ABNORMAL BEHAVIOUR [None]
  - DRUG INEFFECTIVE [None]
  - FATIGUE [None]
  - MOOD SWINGS [None]
  - SOMNOLENCE [None]
  - WEIGHT INCREASED [None]
